FAERS Safety Report 15909024 (Version 2)
Quarter: 2019Q1

REPORT INFORMATION
  Report Type: Report from Study
  Country: US (occurrence: US)
  Receive Date: 20190204
  Receipt Date: 20190213
  Transmission Date: 20190417
  Serious: Yes (Death, Hospitalization)
  Sender: FDA-Public Use
  Company Number: US-ACTELION-A-NJ2018-179182

PATIENT
  Age: 46 Year
  Sex: Female
  Weight: 145.13 kg

DRUGS (3)
  1. REVATIO [Concomitant]
     Active Substance: SILDENAFIL CITRATE
     Dosage: UNK, TID
  2. OPSUMIT [Suspect]
     Active Substance: MACITENTAN
     Indication: PULMONARY HYPERTENSION
     Dosage: 10 MG, QD
     Route: 048
     Dates: end: 20181230
  3. XARELTO [Concomitant]
     Active Substance: RIVAROXABAN

REACTIONS (6)
  - Anuria [Fatal]
  - Haemodialysis [Unknown]
  - Acute kidney injury [Fatal]
  - Metabolic acidosis [Fatal]
  - Pneumonia [Unknown]
  - Fluid overload [Unknown]

NARRATIVE: CASE EVENT DATE: 20181230
